FAERS Safety Report 5750421-X (Version None)
Quarter: 2008Q2

REPORT INFORMATION
  Report Type: 
  Country: None (occurrence: None)
  Receive Date: 20080528
  Receipt Date: 20071112
  Transmission Date: 20081010
  Serious: Yes (Hospitalization)
  Sender: FDA-Public Use
  Company Number: ES-NOVOPROD-275592

PATIENT
  Age: 40 Year
  Sex: Female

DRUGS (2)
  1. LEVEMIR [Suspect]
     Indication: GESTATIONAL DIABETES
  2. NOVORAPID FLEXPEN [Suspect]
     Indication: GESTATIONAL DIABETES

REACTIONS (1)
  - PRE-ECLAMPSIA [None]
